FAERS Safety Report 6891602-1 (Version None)
Quarter: 2010Q3

REPORT INFORMATION
  Report Type: 
  Country: None (occurrence: None)
  Receive Date: 20100731
  Receipt Date: 20070820
  Transmission Date: 20110219
  Serious: No
  Sender: FDA-Public Use
  Company Number: US-PFIZER INC-2007069673

PATIENT
  Age: 35 Year
  Sex: Male
  Weight: 100 kg

DRUGS (3)
  1. NEURONTIN [Suspect]
     Indication: ANXIETY
     Dates: start: 20070808
  2. LAMICTAL [Concomitant]
     Indication: AFFECTIVE DISORDER
  3. ZYPREXA [Concomitant]
     Indication: PSYCHOTIC DISORDER

REACTIONS (1)
  - ABDOMINAL DISCOMFORT [None]
